FAERS Safety Report 5361214-X (Version None)
Quarter: 2007Q2

REPORT INFORMATION
  Report Type: 
  Country: None (occurrence: None)
  Receive Date: 20070618
  Receipt Date: 20070608
  Transmission Date: 20071010
  Serious: Yes (Death)
  Sender: FDA-Public Use
  Company Number: NZ-ABBOTT-07P-118-0371714-00

PATIENT
  Age: 33 Year
  Sex: Female

DRUGS (1)
  1. SEVORANE LIQUID FOR INHALATION [Suspect]
     Indication: DRUG USE FOR UNKNOWN INDICATION
     Dates: start: 20070402, end: 20070402

REACTIONS (1)
  - OVERDOSE [None]
